FAERS Safety Report 7974099-X (Version None)
Quarter: 2011Q4

REPORT INFORMATION
  Report Type: 
  Country: None (occurrence: None)
  Receive Date: 20111213
  Receipt Date: 20101206
  Transmission Date: 20120403
  Serious: Yes (Hospitalization)
  Sender: FDA-Public Use
  Company Number: PHHY2010LT092793

PATIENT
  Age: 54 Year
  Sex: Female
  Weight: 75 kg

DRUGS (1)
  1. DICLOFENAC SODIUM [Suspect]
     Dosage: 19 DF/DAY
     Route: 048

REACTIONS (2)
  - IRRITABILITY [None]
  - DISORIENTATION [None]
